FAERS Safety Report 10183832 (Version 1)
Quarter: 2014Q2

REPORT INFORMATION
  Report Type: Spontaneous
  Country: CN (occurrence: CN)
  Receive Date: 20140520
  Receipt Date: 20140520
  Transmission Date: 20141212
  Serious: Yes (Hospitalization)
  Sender: FDA-Public Use
  Company Number: PHHY2014CN059856

PATIENT
  Age: 42 Year
  Sex: Male
  Weight: 58 kg

DRUGS (7)
  1. MYFORTIC [Suspect]
     Indication: RENAL TRANSPLANT
     Dosage: 1 MG, QD
     Route: 048
     Dates: start: 20130816, end: 20130816
  2. ATG-FRESENIUS S [Suspect]
     Indication: RENAL TRANSPLANT
     Dosage: 500 MG, QD
     Dates: start: 20130816, end: 20130816
  3. ADVAGRAF [Suspect]
     Indication: RENAL TRANSPLANT
     Dosage: 4 MG, QD
     Route: 048
     Dates: start: 20130816, end: 20131029
  4. COLCHICINE [Concomitant]
     Indication: GOUT
     Dosage: 1 MG, TID
     Route: 048
     Dates: start: 20131029, end: 20131031
  5. BETALOC [Concomitant]
     Indication: HYPOTENSION
     Dosage: 23.75 MG, BID
     Route: 048
     Dates: start: 20130826, end: 20131114
  6. NIFEDIPINE [Concomitant]
     Indication: HYPOTENSION
     Dosage: 30 MG, QD
     Route: 048
     Dates: start: 20130826, end: 20131114
  7. MIZORIBINE [Concomitant]

REACTIONS (5)
  - Gout [Recovering/Resolving]
  - Arthralgia [Unknown]
  - Musculoskeletal pain [Unknown]
  - Pyrexia [Recovering/Resolving]
  - Haemoglobin decreased [Recovering/Resolving]
